FAERS Safety Report 18918285 (Version 1)
Quarter: 2021Q1

REPORT INFORMATION
  Report Type: Spontaneous
  Country: US (occurrence: US)
  Receive Date: 20210219
  Receipt Date: 20210219
  Transmission Date: 20210420
  Serious: No
  Sender: FDA-Public Use
  Company Number: US-ELI_LILLY_AND_COMPANY-US202102005348

PATIENT
  Age: 51 Year
  Sex: Female
  Weight: 111 kg

DRUGS (1)
  1. BAMLANIVIMAB 700MG [Suspect]
     Active Substance: BAMLANIVIMAB
     Indication: COVID-19
     Dosage: 700 MG, SINGLE
     Route: 042
     Dates: start: 20210202, end: 20210202

REACTIONS (2)
  - Face oedema [Unknown]
  - Rash pruritic [Unknown]

NARRATIVE: CASE EVENT DATE: 20210205
